FAERS Safety Report 6645092-4 (Version None)
Quarter: 2010Q1

REPORT INFORMATION
  Report Type: 
  Country: None (occurrence: None)
  Receive Date: 20100322
  Receipt Date: 20100311
  Transmission Date: 20100710
  Serious: Yes (Disabling)
  Sender: FDA-Public Use
  Company Number: DK-PFIZER INC-2009305249

PATIENT
  Age: 65 Year
  Sex: Male

DRUGS (1)
  1. CHAMPIX [Suspect]
     Indication: EX-TOBACCO USER
     Dosage: UNK
     Route: 048
     Dates: start: 20090714, end: 20090902

REACTIONS (3)
  - EAR INFECTION [None]
  - HYPOACUSIS [None]
  - NIGHTMARE [None]
